FAERS Safety Report 15012174 (Version 1)
Quarter: 2018Q2

REPORT INFORMATION
  Report Type: Report from Study
  Country: US (occurrence: US)
  Receive Date: 20180614
  Receipt Date: 20180614
  Transmission Date: 20180711
  Serious: Yes (Death)
  Sender: FDA-Public Use
  Company Number: US-ELI_LILLY_AND_COMPANY-US201806005430

PATIENT

DRUGS (2)
  1. PEVONEDISTAT [Suspect]
     Active Substance: PEVONEDISTAT
     Indication: NEOPLASM
     Dosage: 25 MG/M2, WEEKLY (1/W)
     Route: 042
  2. GEMCITABINE HYDROCHLORIDE. [Suspect]
     Active Substance: GEMCITABINE HYDROCHLORIDE
     Indication: NEOPLASM
     Dosage: 1000 MG/M2, CYCLICAL
     Route: 065

REACTIONS (1)
  - Febrile neutropenia [Fatal]
